FAERS Safety Report 25373882 (Version 1)
Quarter: 2025Q2

REPORT INFORMATION
  Report Type: Spontaneous
  Country: US (occurrence: US)
  Receive Date: 20250529
  Receipt Date: 20250529
  Transmission Date: 20250717
  Serious: No
  Sender: ELI LILLY AND COMPANY
  Company Number: US-ELI_LILLY_AND_COMPANY-US202505018365

PATIENT
  Age: 33 Year
  Sex: Female
  Weight: 81.633 kg

DRUGS (17)
  1. REYVOW [Suspect]
     Active Substance: LASMIDITAN
     Indication: Migraine
     Route: 048
     Dates: start: 2021, end: 202407
  2. BOTOX [Suspect]
     Active Substance: ONABOTULINUMTOXINA
     Indication: Migraine prophylaxis
     Route: 030
     Dates: start: 2016
  3. ELETRIPTAN [Suspect]
     Active Substance: ELETRIPTAN
     Indication: Migraine
     Route: 048
     Dates: start: 2021
  4. AUGMENTIN [Concomitant]
     Active Substance: AMOXICILLIN\CLAVULANATE POTASSIUM
     Indication: Sinusitis
     Dosage: 500 MG, BID
     Route: 048
     Dates: start: 202409, end: 202409
  5. BUDESONIDE [Concomitant]
     Active Substance: BUDESONIDE
     Indication: Sinusitis
     Route: 045
  6. CIPROFLOXACIN HYDROCHLORIDE [Concomitant]
     Active Substance: CIPROFLOXACIN HYDROCHLORIDE
     Indication: Ear infection
     Route: 001
     Dates: start: 202405, end: 202405
  7. LAGEVRIO [Concomitant]
     Active Substance: MOLNUPIRAVIR
     Indication: COVID-19
     Dosage: 200 MG, BID
     Route: 048
     Dates: start: 202405, end: 202405
  8. PROPRANOLOL [Concomitant]
     Active Substance: PROPRANOLOL HYDROCHLORIDE
     Indication: Bruxism
     Dosage: 20 MG, BID
     Route: 048
     Dates: start: 2020
  9. SEROQUEL [Concomitant]
     Active Substance: QUETIAPINE FUMARATE
     Indication: Bipolar disorder
     Dosage: 250 MG, DAILY
     Route: 048
     Dates: start: 2020
  10. CLARITIN [Concomitant]
     Active Substance: LORATADINE
     Indication: Seasonal allergy
     Dosage: 10 MG, DAILY
     Route: 048
     Dates: start: 202312
  11. CLARITIN [Concomitant]
     Active Substance: LORATADINE
     Indication: Hypersensitivity
  12. EUFLEXXA [Concomitant]
     Active Substance: HYALURONATE SODIUM
     Indication: Osteoarthritis
     Route: 042
     Dates: start: 2014
  13. PANTOPRAZOLE [Concomitant]
     Active Substance: PANTOPRAZOLE
     Indication: Gastritis
     Dosage: 40 MG, DAILY
     Route: 048
     Dates: start: 202403
  14. HYQVIA [Concomitant]
     Active Substance: HUMAN IMMUNOGLOBULIN G\HYALURONIDASE (HUMAN RECOMBINANT)
     Indication: Primary immunodeficiency syndrome
     Dosage: UNK, MONTHLY (1/M)
     Route: 058
     Dates: start: 2016
  15. TRETINOIN [Concomitant]
     Active Substance: TRETINOIN
     Indication: Acne
     Route: 065
     Dates: start: 2023, end: 202407
  16. CLINDAMYCIN [Concomitant]
     Active Substance: CLINDAMYCIN
     Indication: Acne
     Dosage: UNK, BID
     Route: 061
     Dates: start: 2023
  17. FINACEA [Concomitant]
     Active Substance: AZELAIC ACID
     Indication: Acne
     Dosage: UNK, DAILY
     Route: 061
     Dates: start: 20241001

REACTIONS (2)
  - Amniotic fluid volume increased [Not Recovered/Not Resolved]
  - Maternal exposure before pregnancy [Unknown]

NARRATIVE: CASE EVENT DATE: 20250201
